FAERS Safety Report 9407449 (Version 1)
Quarter: 2013Q3

REPORT INFORMATION
  Report Type: Spontaneous
  Country: US (occurrence: None)
  Receive Date: 20130717
  Receipt Date: 20130717
  Transmission Date: 20140515
  Serious: No
  Sender: FDA-Public Use
  Company Number: None

PATIENT
  Sex: Female
  Weight: 10.76 kg

DRUGS (2)
  1. LAMOTRIGINE [Suspect]
     Dosage: 1 TABLET ?GREATER THAN 1 YEAR AGO
     Route: 048
  2. LAMOTRIGINE [Suspect]
     Dosage: 1 TABLET ?GREATER THAN ONE YEAR AGO
     Route: 048

REACTIONS (2)
  - Product substitution issue [None]
  - Therapeutic response unexpected with drug substitution [None]
